FAERS Safety Report 14567524 (Version 1)
Quarter: 2018Q1

REPORT INFORMATION
  Report Type: Not Available
  Country: GB (occurrence: GB)
  Receive Date: 20180223
  Receipt Date: 20180223
  Transmission Date: 20180509
  Serious: Yes (Other)
  Sender: FDA-Public Use
  Company Number: GB-SYNTHON BV-NL01PV18_46628

PATIENT
  Age: 57 Year
  Sex: Male
  Weight: 92.7 kg

DRUGS (1)
  1. DIFFUNDOX XL [Suspect]
     Active Substance: TAMSULOSIN HYDROCHLORIDE
     Indication: URETHRAL DISORDER
     Dosage: 400 ?G, UNK
     Route: 048
     Dates: start: 20151107

REACTIONS (1)
  - Semen volume decreased [Not Recovered/Not Resolved]

NARRATIVE: CASE EVENT DATE: 20171110
